FAERS Safety Report 22864123 (Version 7)
Quarter: 2025Q1

REPORT INFORMATION
  Report Type: Spontaneous
  Country: US (occurrence: US)
  Receive Date: 20230825
  Receipt Date: 20250312
  Transmission Date: 20250409
  Serious: Yes (Other)
  Sender: SANOFI AVENTIS
  Company Number: US-SA-SAC20230824000542

PATIENT
  Age: 59 Year
  Sex: Female

DRUGS (4)
  1. DUPIXENT [Suspect]
     Active Substance: DUPILUMAB
     Indication: Asthma
     Route: 058
     Dates: start: 20230628, end: 20230628
  2. DUPIXENT [Suspect]
     Active Substance: DUPILUMAB
     Indication: Dermatitis atopic
     Dosage: 300 MG, QOW
     Route: 058
     Dates: start: 202307
  3. DUPIXENT [Suspect]
     Active Substance: DUPILUMAB
     Indication: Eczema
  4. SINGULAIR [Concomitant]
     Active Substance: MONTELUKAST SODIUM

REACTIONS (5)
  - Cataract [Not Recovered/Not Resolved]
  - Visual impairment [Not Recovered/Not Resolved]
  - Vision blurred [Not Recovered/Not Resolved]
  - Pulmonary congestion [Recovered/Resolved]
  - Dermatitis atopic [Unknown]

NARRATIVE: CASE EVENT DATE: 20230101
